FAERS Safety Report 6984139-2 (Version None)
Quarter: 2010Q3

REPORT INFORMATION
  Report Type: 
  Country: None (occurrence: None)
  Receive Date: 20100915
  Receipt Date: 20090702
  Transmission Date: 20110219
  Serious: No
  Sender: FDA-Public Use
  Company Number: US-WYE-H10026509

PATIENT
  Age: 85 Year
  Sex: Female
  Weight: 65.83 kg

DRUGS (3)
  1. ADVIL LIQUI-GELS [Suspect]
     Indication: BACK PAIN
     Dosage: TAKES 3 LIQUI-GELS AT A TIME AS NEEDED
     Route: 048
     Dates: start: 20080101
  2. EVISTA [Concomitant]
  3. THYROID [Concomitant]

REACTIONS (3)
  - DRUG INEFFECTIVE [None]
  - INCORRECT DOSE ADMINISTERED [None]
  - OVERDOSE [None]
